FAERS Safety Report 9318120 (Version 1)
Quarter: 2013Q2

REPORT INFORMATION
  Report Type: Spontaneous
  Country: US (occurrence: US)
  Receive Date: 20130530
  Receipt Date: 20130530
  Transmission Date: 20140414
  Serious: No
  Sender: FDA-Public Use
  Company Number: US-NOVEN-12US005607

PATIENT
  Age: 12 Year
  Sex: Male

DRUGS (5)
  1. DAYTRANA [Suspect]
     Indication: ATTENTION DEFICIT/HYPERACTIVITY DISORDER
     Dosage: 30 MG, UNK
     Route: 062
  2. RISPERIDONE [Concomitant]
     Dosage: 1.5 TABS
     Route: 048
  3. LEVOTHYROXINE [Concomitant]
     Route: 048
  4. TRAZODONE [Concomitant]
     Indication: INSOMNIA
     Route: 048
  5. TENEX [Concomitant]
     Dosage: 1.5 TABS
     Route: 048

REACTIONS (3)
  - Application site erythema [Not Recovered/Not Resolved]
  - Application site rash [Not Recovered/Not Resolved]
  - Application site pruritus [Not Recovered/Not Resolved]
